FAERS Safety Report 18846270 (Version 1)
Quarter: 2021Q1

REPORT INFORMATION
  Report Type: Other
  Country: DE (occurrence: DE)
  Receive Date: 20210204
  Receipt Date: 20210204
  Transmission Date: 20210419
  Serious: Yes (Hospitalization)
  Sender: FDA-Public Use
  Company Number: DE-LUPIN PHARMACEUTICALS INC.-2021-00805

PATIENT
  Age: 72 Year
  Sex: Female
  Weight: 60 kg

DRUGS (1)
  1. DULOXETINE. [Suspect]
     Active Substance: DULOXETINE
     Indication: DEPRESSED MOOD
     Dosage: 30 MILLIGRAM, UNK
     Route: 048
     Dates: start: 20201120, end: 20201123

REACTIONS (3)
  - Nausea [Unknown]
  - Hyponatraemia [Unknown]
  - Dizziness [Unknown]

NARRATIVE: CASE EVENT DATE: 20201124
